FAERS Safety Report 7626246-7 (Version None)
Quarter: 2011Q3

REPORT INFORMATION
  Report Type: 
  Country: None (occurrence: None)
  Receive Date: 20110721
  Receipt Date: 20110712
  Transmission Date: 20111222
  Serious: No
  Sender: FDA-Public Use
  Company Number: PHHY2011US62808

PATIENT

DRUGS (11)
  1. TASIGNA [Suspect]
     Indication: NEOPLASM MALIGNANT
     Dosage: 400 MG, BID
     Route: 048
     Dates: start: 20101014
  2. NEXIUM [Concomitant]
  3. PAROXETINE HCL [Concomitant]
  4. LEVOTHYROXINE SODIUM [Concomitant]
  5. SUDAFED 12 HOUR [Concomitant]
  6. SIMVASTATIN [Concomitant]
  7. ZANTAC [Concomitant]
  8. BENAZEPRIL HYDROCHLORIDE [Concomitant]
  9. ASPIRIN [Concomitant]
  10. AMLODIPINE [Concomitant]
  11. METOPROLOL TARTRATE [Concomitant]

REACTIONS (1)
  - RASH [None]
